FAERS Safety Report 11866247 (Version 1)
Quarter: 2015Q4

REPORT INFORMATION
  Report Type: Spontaneous
  Country: US (occurrence: US)
  Receive Date: 20151223
  Receipt Date: 20151223
  Transmission Date: 20160305
  Serious: No
  Sender: FDA-Public Use
  Company Number: US-PFIZER INC-2015409700

PATIENT
  Age: 77 Year
  Sex: Male
  Weight: 105 kg

DRUGS (3)
  1. SUTENT [Suspect]
     Active Substance: SUNITINIB MALATE
     Indication: RENAL CELL CARCINOMA
     Dosage: 50 MG, CYCLIC(2 WEEKS ON AND 2 WEEKS OFF, 50MG, CAPSULE, ONCE IN A DAY)
     Route: 048
     Dates: start: 201402
  2. CRESTOR [Concomitant]
     Active Substance: ROSUVASTATIN CALCIUM
     Indication: BLOOD CHOLESTEROL INCREASED
     Dosage: 20 MG, 1X/DAY
     Route: 048
  3. LOSARTAN. [Concomitant]
     Active Substance: LOSARTAN

REACTIONS (3)
  - Rash [Not Recovered/Not Resolved]
  - Rash papular [Not Recovered/Not Resolved]
  - Diarrhoea [Not Recovered/Not Resolved]
